FAERS Safety Report 5011660-9 (Version None)
Quarter: 2006Q2

REPORT INFORMATION
  Report Type: 
  Country: None (occurrence: None)
  Receive Date: 20060526
  Receipt Date: 20060518
  Transmission Date: 20061013
  Serious: Yes (Hospitalization)
  Sender: FDA-Public Use
  Company Number: US-JNJFOC-20060504237

PATIENT
  Sex: Female
  Weight: 48.99 kg

DRUGS (18)
  1. REMICADE [Suspect]
     Route: 042
  2. REMICADE [Suspect]
     Indication: RHEUMATOID ARTHRITIS
     Route: 042
  3. FOSAMAX [Concomitant]
  4. GOLD [Concomitant]
  5. METHOTREXATE [Concomitant]
  6. MULTI-VITAMIN [Concomitant]
  7. MULTI-VITAMIN [Concomitant]
  8. MULTI-VITAMIN [Concomitant]
  9. MULTI-VITAMIN [Concomitant]
  10. MULTI-VITAMIN [Concomitant]
  11. MULTI-VITAMIN [Concomitant]
  12. MULTI-VITAMIN [Concomitant]
  13. MULTI-VITAMIN [Concomitant]
  14. PREDNISONE TAB [Concomitant]
  15. WARFARIN SODIUM [Concomitant]
  16. MOBIC [Concomitant]
  17. OSCAL+D [Concomitant]
  18. OSCAL+D [Concomitant]

REACTIONS (2)
  - HAEMATOMA [None]
  - STAPHYLOCOCCAL INFECTION [None]
